FAERS Safety Report 10964201 (Version 1)
Quarter: 2015Q1

REPORT INFORMATION
  Report Type: Spontaneous
  Country: FR (occurrence: FR)
  Receive Date: 20150329
  Receipt Date: 20150329
  Transmission Date: 20150721
  Serious: Yes (Life-Threatening, Hospitalization)
  Sender: FDA-Public Use
  Company Number: PHHY2015FR035642

PATIENT
  Age: 84 Year
  Sex: Female

DRUGS (3)
  1. GLIVEC [Suspect]
     Active Substance: IMATINIB MESYLATE
     Indication: CHORDOMA
     Route: 065
     Dates: start: 2010, end: 2010
  2. GLIVEC [Suspect]
     Active Substance: IMATINIB MESYLATE
     Indication: OFF LABEL USE
  3. ENDOXAN [Suspect]
     Active Substance: CYCLOPHOSPHAMIDE
     Indication: CHORDOMA
     Route: 065
     Dates: start: 2010, end: 2010

REACTIONS (1)
  - Acute myeloid leukaemia [Unknown]

NARRATIVE: CASE EVENT DATE: 201412
